FAERS Safety Report 19464992 (Version 15)
Quarter: 2025Q1

REPORT INFORMATION
  Report Type: Report from Study
  Country: US (occurrence: US)
  Receive Date: 20210626
  Receipt Date: 20250129
  Transmission Date: 20250409
  Serious: Yes (Hospitalization, Other)
  Sender: TAKEDA
  Company Number: US-SHIRE-US201924317AA

PATIENT
  Sex: Female
  Weight: 116 kg

DRUGS (24)
  1. ICATIBANT [Suspect]
     Active Substance: ICATIBANT ACETATE
     Indication: Immune system disorder
  2. ICATIBANT [Suspect]
     Active Substance: ICATIBANT ACETATE
     Indication: Idiopathic urticaria
  3. CINRYZE [Suspect]
     Active Substance: HUMAN C1-ESTERASE INHIBITOR
     Indication: Immune system disorder
     Dosage: 1000 INTERNATIONAL UNIT, Q3WEEKS
     Dates: start: 20180831
  4. CINRYZE [Suspect]
     Active Substance: HUMAN C1-ESTERASE INHIBITOR
     Indication: Idiopathic urticaria
     Dosage: 1000 INTERNATIONAL UNIT, Q3WEEKS
     Dates: start: 20181129
  5. CINRYZE [Suspect]
     Active Substance: HUMAN C1-ESTERASE INHIBITOR
     Dosage: 1000 INTERNATIONAL UNIT, QOD
  6. CINRYZE [Suspect]
     Active Substance: HUMAN C1-ESTERASE INHIBITOR
     Dosage: 1000 INTERNATIONAL UNIT, Q72H
  7. CINRYZE [Suspect]
     Active Substance: HUMAN C1-ESTERASE INHIBITOR
     Dosage: 2000 INTERNATIONAL UNIT, Q72H
  8. CINRYZE [Suspect]
     Active Substance: HUMAN C1-ESTERASE INHIBITOR
  9. HEPARIN [Concomitant]
     Active Substance: HEPARIN SODIUM
  10. SODIUM CHLORIDE [Concomitant]
     Active Substance: SODIUM CHLORIDE
  11. STERILE WATER [Concomitant]
     Active Substance: WATER
  12. EPINEPHRINE [Concomitant]
     Active Substance: EPINEPHRINE
  13. XOLAIR [Concomitant]
     Active Substance: OMALIZUMAB
  14. ZOLOFT [Concomitant]
     Active Substance: SERTRALINE HYDROCHLORIDE
  15. SYNTHROID [Concomitant]
     Active Substance: LEVOTHYROXINE SODIUM
  16. RANITIDINE [Concomitant]
     Active Substance: RANITIDINE
  17. ZYRTEC [Concomitant]
     Active Substance: CETIRIZINE HYDROCHLORIDE
  18. GLIPIZIDE [Concomitant]
     Active Substance: GLIPIZIDE
  19. PFIZER-BIONTECH COVID-19 VACCINE [Concomitant]
     Active Substance: TOZINAMERAN
  20. FAMOTIDINE [Concomitant]
     Active Substance: FAMOTIDINE
  21. VOLTAREN ARTHRITIS PAIN [Concomitant]
     Active Substance: DICLOFENAC SODIUM
  22. ATORVASTATIN CALCIUM [Concomitant]
     Active Substance: ATORVASTATIN CALCIUM
  23. BUPROPION HYDROCHLORIDE [Concomitant]
     Active Substance: BUPROPION HYDROCHLORIDE
  24. CARVEDILOL [Concomitant]
     Active Substance: CARVEDILOL

REACTIONS (13)
  - Sepsis [Unknown]
  - Cardiac discomfort [Unknown]
  - Fluid retention [Unknown]
  - Staphylococcal infection [Unknown]
  - Hereditary angioedema [Unknown]
  - Vascular device infection [Unknown]
  - Kidney infection [Unknown]
  - Skin cancer [Unknown]
  - Spinal cord abscess [Unknown]
  - Weight decreased [Unknown]
  - Illness [Unknown]
  - Off label use [Unknown]
  - Inappropriate schedule of product administration [Unknown]
